FAERS Safety Report 15700610 (Version 3)
Quarter: 2019Q1

REPORT INFORMATION
  Report Type: Spontaneous
  Country: US (occurrence: US)
  Receive Date: 20181207
  Receipt Date: 20190221
  Transmission Date: 20190417
  Serious: Yes (Other)
  Sender: FDA-Public Use
  Company Number: US-NOVOPROD-635549

PATIENT
  Sex: Female

DRUGS (1)
  1. NOVOLOG [Suspect]
     Active Substance: INSULIN ASPART
     Indication: TYPE 1 DIABETES MELLITUS
     Dosage: 12 IU, QD (SLIDING SCALE 2.5 U BREAKFAST, 3.5 U LUNCH, 6 U DINNER)
     Route: 058

REACTIONS (2)
  - Eye haemorrhage [Unknown]
  - Diabetic retinopathy [Unknown]
